FAERS Safety Report 15291395 (Version 2)
Quarter: 2018Q3

REPORT INFORMATION
  Report Type: Spontaneous
  Country: US (occurrence: US)
  Receive Date: 20180817
  Receipt Date: 20180824
  Transmission Date: 20181010
  Serious: No
  Sender: FDA-Public Use
  Company Number: US-PFIZER INC-2017144671

PATIENT
  Age: 3 Year
  Sex: Male
  Weight: 23 kg

DRUGS (3)
  1. GENOTROPIN [Suspect]
     Active Substance: SOMATROPIN
     Indication: GROWTH HORMONE DEFICIENCY
     Dosage: 0.2 MG, DAILY
     Dates: start: 2013
  2. GENOTROPIN [Suspect]
     Active Substance: SOMATROPIN
     Indication: HYPOPITUITARISM
     Dosage: 0.2 MG, 1X/DAY [NIGHTLY AT BEDTIME]
     Route: 058
     Dates: start: 201306
  3. GENOTROPIN [Suspect]
     Active Substance: SOMATROPIN
     Indication: SEPTO-OPTIC DYSPLASIA
     Dosage: 0.5 MG, DAILY
     Dates: start: 2013

REACTIONS (8)
  - Device leakage [Unknown]
  - Incorrect dose administered [Unknown]
  - Basophil count increased [Unknown]
  - Urticaria [Unknown]
  - Bone density abnormal [Unknown]
  - Drug dose omission [Unknown]
  - Lymphocyte count increased [Unknown]
  - Neutrophil count increased [Unknown]
